FAERS Safety Report 7307507-8 (Version None)
Quarter: 2011Q1

REPORT INFORMATION
  Report Type: 
  Country: None (occurrence: None)
  Receive Date: 20110223
  Receipt Date: 20110216
  Transmission Date: 20110831
  Serious: Yes (Other)
  Sender: FDA-Public Use
  Company Number: DE-BRISTOL-MYERS SQUIBB COMPANY-15555519

PATIENT

DRUGS (1)
  1. HYDROXYUREA [Suspect]
     Indication: POLYCYTHAEMIA VERA
     Dosage: DURATION OF THERAPY:1 MONTH

REACTIONS (2)
  - COAGULATION FACTOR V LEVEL DECREASED [None]
  - HAEMORRHAGE [None]
